FAERS Safety Report 8984915 (Version 1)
Quarter: 2012Q4

REPORT INFORMATION
  Report Type: 
  Country: US (occurrence: US)
  Receive Date: 20121225
  Receipt Date: 20121225
  Transmission Date: 20130627
  Serious: No
  Sender: FDA-Public Use
  Company Number: US-009507513-1212USA009653

PATIENT
  Sex: Male

DRUGS (2)
  1. PEG-INTRON [Suspect]
     Indication: HEPATITIS C
     Dosage: UNK
     Dates: start: 20121205
  2. RIBAVIRIN [Suspect]
     Indication: HEPATITIS C
     Dosage: UNK
     Dates: start: 20121205

REACTIONS (7)
  - Chromaturia [Unknown]
  - Fatigue [Unknown]
  - Viral infection [Unknown]
  - Pyrexia [Unknown]
  - Headache [Unknown]
  - Asthenia [Unknown]
  - Chills [Unknown]
